FAERS Safety Report 22177924 (Version 3)
Quarter: 2023Q2

REPORT INFORMATION
  Report Type: Report from Study
  Country: US (occurrence: US)
  Receive Date: 20230405
  Receipt Date: 20230413
  Transmission Date: 20230722
  Serious: No
  Sender: FDA-Public Use
  Company Number: US-002147023-NVSC2023US077871

PATIENT
  Sex: Female

DRUGS (1)
  1. GABAPENTIN [Suspect]
     Active Substance: GABAPENTIN
     Indication: Systemic lupus erythematosus
     Dosage: UNK
     Route: 065

REACTIONS (33)
  - Feeling abnormal [Recovering/Resolving]
  - Swelling [Unknown]
  - Butterfly rash [Unknown]
  - Dry skin [Unknown]
  - Renal pain [Unknown]
  - Chills [Unknown]
  - Night sweats [Unknown]
  - Accident [Unknown]
  - Memory impairment [Unknown]
  - Chest discomfort [Unknown]
  - Malaise [Unknown]
  - Pain [Recovering/Resolving]
  - Rash [Not Recovered/Not Resolved]
  - Headache [Unknown]
  - Insomnia [Unknown]
  - Fatigue [Unknown]
  - Somnolence [Unknown]
  - Dyspnoea [Unknown]
  - Pruritus [Unknown]
  - Dyspepsia [Unknown]
  - Dizziness [Unknown]
  - Chest pain [Unknown]
  - Depression [Unknown]
  - Arthralgia [Unknown]
  - Pyrexia [Unknown]
  - Increased appetite [Unknown]
  - Nausea [Unknown]
  - Hypotension [Unknown]
  - Flushing [Unknown]
  - Myalgia [Unknown]
  - Heart rate irregular [Unknown]
  - Product dose omission issue [Unknown]
  - Product use in unapproved indication [Unknown]
